FAERS Safety Report 4434085-3 (Version None)
Quarter: 2004Q3

REPORT INFORMATION
  Report Type: 
  Country: None (occurrence: None)
  Receive Date: 20040825
  Receipt Date: 20040811
  Transmission Date: 20050211
  Serious: Yes (Death, Other)
  Sender: FDA-Public Use
  Company Number: GB-2004-030132

PATIENT
  Age: 54 Year
  Sex: Male

DRUGS (4)
  1. FLUDARABINE PHOSPHATE [Suspect]
     Indication: ACUTE MYELOID LEUKAEMIA RECURRENT
     Dosage: SEE IMAGE
     Dates: start: 20021001
  2. CYTARABINE [Suspect]
     Indication: ACUTE MYELOID LEUKAEMIA RECURRENT
     Dosage: SEE IMAGE
     Dates: start: 20021001
  3. RETINOIC ACID (RETINOIN) [Suspect]
     Indication: ACUTE MYELOID LEUKAEMIA RECURRENT
     Dosage: SEE IMAGE
     Dates: start: 20021001
  4. VORICONAZOLE (VORICONAZOLE) [Suspect]
     Indication: INFECTION PROPHYLAXIS
     Dosage: AFTER FIRST COURSE OF FLA
     Dates: start: 20020101

REACTIONS (14)
  - ALVEOLAR PROTEINOSIS [None]
  - AREFLEXIA [None]
  - ASTHENIA [None]
  - CARDIAC TAMPONADE [None]
  - DRUG INTERACTION [None]
  - INFLUENZA [None]
  - LUNG CONSOLIDATION [None]
  - MENTAL IMPAIRMENT [None]
  - NEUROPATHY PERIPHERAL [None]
  - NEUROTOXICITY [None]
  - PERICARDITIS [None]
  - PLEURAL EFFUSION [None]
  - PULMONARY MYCOSIS [None]
  - THERAPEUTIC AGENT TOXICITY [None]
